FAERS Safety Report 20792473 (Version 1)
Quarter: 2022Q2

REPORT INFORMATION
  Report Type: Spontaneous
  Country: DE (occurrence: None)
  Receive Date: 20220506
  Receipt Date: 20220506
  Transmission Date: 20220721
  Serious: Yes (Other)
  Sender: FDA-Public Use
  Company Number: DE-ROCHE-2482026

PATIENT
  Age: 79 Year
  Sex: Male
  Weight: 61 kg

DRUGS (7)
  1. MABTHERA [Suspect]
     Active Substance: RITUXIMAB
     Indication: Diffuse large B-cell lymphoma
     Dosage: 1ST LINE, R-COEP -14; 2 CYCLES, (PARTIAL REMISSION)
     Route: 065
     Dates: start: 20170914, end: 20170929
  2. MABTHERA [Suspect]
     Active Substance: RITUXIMAB
     Dosage: 2ND LINE, R-BENDAMUSTINE
     Route: 065
     Dates: start: 201801, end: 201804
  3. BENDAMUSTINE [Suspect]
     Active Substance: BENDAMUSTINE
     Indication: Diffuse large B-cell lymphoma
     Dosage: 2ND LINE, 4 CYCLES, (PARTIAL REMISSION)
     Route: 065
     Dates: start: 20180101, end: 20180104
  4. CYCLOPHOSPHAMIDE [Concomitant]
     Active Substance: CYCLOPHOSPHAMIDE
  5. DOXORUBICIN [Concomitant]
     Active Substance: DOXORUBICIN
  6. PREDNISONE [Concomitant]
     Active Substance: PREDNISONE
  7. VINCRISTINE [Concomitant]
     Active Substance: VINCRISTINE

REACTIONS (2)
  - Pulmonary sepsis [Unknown]
  - Cardiac dysfunction [Unknown]
